FAERS Safety Report 6946145-3 (Version None)
Quarter: 2010Q3

REPORT INFORMATION
  Report Type: 
  Country: None (occurrence: None)
  Receive Date: 20100827
  Receipt Date: 20100817
  Transmission Date: 20110219
  Serious: Yes (Disabling, Other)
  Sender: FDA-Public Use
  Company Number: FR-ELI_LILLY_AND_COMPANY-FR200910003156

PATIENT
  Sex: Male
  Weight: 66 kg

DRUGS (5)
  1. GEMZAR [Suspect]
     Indication: PANCREATIC CARCINOMA METASTATIC
     Dosage: 1000 MG, CYCLE 1 OF 8 WEEKS DURATION AND THEN CYCLES OF 4 WEEKS.
     Route: 042
     Dates: start: 20090909, end: 20091001
  2. GEMZAR [Suspect]
     Dosage: UNK, UNKNOWN
     Route: 058
     Dates: start: 20091001
  3. EFFERALGAN CODEINE [Concomitant]
     Indication: PAIN
     Dosage: 6 D/F, DAILY (1/D)
     Route: 048
     Dates: start: 20090901
  4. OMEPRAZOLE [Concomitant]
     Indication: ABDOMINAL PAIN UPPER
     Dosage: 1 D/F, DAILY (1/D)
     Route: 048
     Dates: start: 20090901
  5. INNOHEP [Concomitant]
     Indication: THROMBOSIS
     Dosage: 1 D/F, DAILY (1/D)
     Route: 058
     Dates: start: 20090801

REACTIONS (4)
  - BLOOD ALKALINE PHOSPHATASE INCREASED [None]
  - CEREBROVASCULAR ACCIDENT [None]
  - GAMMA-GLUTAMYLTRANSFERASE INCREASED [None]
  - HEMIPARESIS [None]
